FAERS Safety Report 13994245 (Version 2)
Quarter: 2017Q4

REPORT INFORMATION
  Report Type: Report from Study
  Country: JP (occurrence: JP)
  Receive Date: 20170920
  Receipt Date: 20171108
  Transmission Date: 20180321
  Serious: Yes (Death, Life-Threatening, Hospitalization, Other)
  Sender: FDA-Public Use
  Company Number: JP-GILEAD-2014-0121662

PATIENT
  Age: 57 Year
  Sex: Female
  Weight: 37 kg

DRUGS (29)
  1. FUROSEMIDE. [Concomitant]
     Active Substance: FUROSEMIDE
     Dosage: UNK
  2. FUROSEMIDE. [Concomitant]
     Active Substance: FUROSEMIDE
     Dosage: UNK
  3. ZYLORIC [Concomitant]
     Active Substance: ALLOPURINOL
     Dosage: UNK
  4. ZYLORIC [Concomitant]
     Active Substance: ALLOPURINOL
     Dosage: UNK
  5. WARFARIN [Concomitant]
     Active Substance: WARFARIN
     Indication: THROMBOSIS PROPHYLAXIS
     Dosage: UNK
     Dates: start: 1987
  6. AMBRISENTAN [Suspect]
     Active Substance: AMBRISENTAN
     Indication: PULMONARY ARTERIAL HYPERTENSION
     Dosage: 10 MG, QD
     Route: 048
     Dates: start: 20120620, end: 20121009
  7. BLOPRESS [Concomitant]
     Active Substance: CANDESARTAN CILEXETIL
     Dosage: UNK
  8. AMBRISENTAN [Suspect]
     Active Substance: AMBRISENTAN
     Dosage: 10 MG, QD
     Route: 048
     Dates: start: 20140709, end: 20160810
  9. COCARL [Concomitant]
     Active Substance: ACETAMINOPHEN
     Dosage: UNK
     Dates: start: 20121205
  10. OXYGEN. [Concomitant]
     Active Substance: OXYGEN
  11. FUROSEMIDE. [Concomitant]
     Active Substance: FUROSEMIDE
     Dosage: UNK
  12. ZYLORIC [Concomitant]
     Active Substance: ALLOPURINOL
     Dosage: UNK
  13. FUROSEMIDE. [Concomitant]
     Active Substance: FUROSEMIDE
     Dosage: UNK
  14. ZYLORIC [Concomitant]
     Active Substance: ALLOPURINOL
     Dosage: UNK
  15. ZYLORIC [Concomitant]
     Active Substance: ALLOPURINOL
     Dosage: UNK
  16. SAMSCA [Concomitant]
     Active Substance: TOLVAPTAN
     Dosage: UNK
     Dates: start: 20130408
  17. LYRICA [Concomitant]
     Active Substance: PREGABALIN
     Dosage: UNK
     Dates: start: 20130418
  18. ADCIRCA [Concomitant]
     Active Substance: TADALAFIL
     Indication: HEART DISEASE CONGENITAL
     Dosage: UNK
  19. ADCIRCA [Concomitant]
     Active Substance: TADALAFIL
     Indication: PULMONARY ARTERIAL HYPERTENSION
  20. FUROSEMIDE. [Concomitant]
     Active Substance: FUROSEMIDE
     Dosage: UNK
  21. FUROSEMIDE. [Concomitant]
     Active Substance: FUROSEMIDE
     Dosage: UNK
  22. ZYLORIC [Concomitant]
     Active Substance: ALLOPURINOL
     Dosage: UNK
  23. ZYLORIC [Concomitant]
     Active Substance: ALLOPURINOL
     Dosage: UNK
  24. ADCIRCA [Concomitant]
     Active Substance: TADALAFIL
     Indication: PULMONARY HYPERTENSION
     Dosage: UNK
     Dates: start: 20140402
  25. AMBRISENTAN [Suspect]
     Active Substance: AMBRISENTAN
     Indication: HEART DISEASE CONGENITAL
     Dosage: 5 MG, QD
     Route: 048
     Dates: start: 20120606, end: 20120619
  26. AMBRISENTAN [Suspect]
     Active Substance: AMBRISENTAN
     Dosage: 7.5 MG, QD
     Route: 048
     Dates: start: 20121010, end: 20140708
  27. FUROSEMIDE. [Concomitant]
     Active Substance: FUROSEMIDE
     Dosage: UNK
  28. FUROSEMIDE. [Concomitant]
     Active Substance: FUROSEMIDE
     Dosage: UNK
  29. ZYLORIC [Concomitant]
     Active Substance: ALLOPURINOL
     Dosage: UNK

REACTIONS (11)
  - Right ventricular failure [Recovered/Resolved]
  - Hypothyroidism [Recovering/Resolving]
  - Nasopharyngitis [Recovered/Resolved]
  - Right ventricular failure [Fatal]
  - Cardiac failure [Recovering/Resolving]
  - Uterine cancer [Fatal]
  - Uterine haemorrhage [Recovered/Resolved]
  - Uterine cancer [Not Recovered/Not Resolved]
  - Condition aggravated [Not Recovered/Not Resolved]
  - Off label use [Recovered/Resolved]
  - Cardiac failure [Fatal]

NARRATIVE: CASE EVENT DATE: 20121010
